FAERS Safety Report 19085497 (Version 1)
Quarter: 2021Q2

REPORT INFORMATION
  Report Type: Spontaneous
  Country: US (occurrence: US)
  Receive Date: 20210401
  Receipt Date: 20210401
  Transmission Date: 20210717
  Serious: No
  Sender: FDA-Public Use
  Company Number: US-IBSA PHARMA-2020-IBS-00699

PATIENT
  Age: 61 Year

DRUGS (16)
  1. OXAPROZIN. [Suspect]
     Active Substance: OXAPROZIN
  2. NAPROXEN. [Suspect]
     Active Substance: NAPROXEN
  3. SALSALATE. [Suspect]
     Active Substance: SALSALATE
  4. INDOMETHACIN [INDOMETACIN] [Suspect]
     Active Substance: INDOMETHACIN
  5. KETOPROFEN. [Suspect]
     Active Substance: KETOPROFEN
  6. TOLMETIN [Suspect]
     Active Substance: TOLMETIN
  7. PIROXICAM. [Suspect]
     Active Substance: PIROXICAM
  8. NABUMETONE. [Suspect]
     Active Substance: NABUMETONE
  9. VENTOLIN HFA [Concomitant]
     Active Substance: ALBUTEROL SULFATE
  10. KETOROLAC TROMETAMINA [Suspect]
     Active Substance: KETOROLAC TROMETHAMINE
  11. MISOPROSTOL. [Suspect]
     Active Substance: MISOPROSTOL
  12. MELOXICAM. [Suspect]
     Active Substance: MELOXICAM
  13. SULINDAC. [Suspect]
     Active Substance: SULINDAC
  14. DICLOFENAC EPOLAMINE [Suspect]
     Active Substance: DICLOFENAC EPOLAMINE
  15. CHLORPHENIRAMINE C [Suspect]
     Active Substance: CHLORPHENIRAMINE MALEATE
  16. CAMPHOR [Suspect]
     Active Substance: CAMPHOR

REACTIONS (1)
  - Hypersensitivity [Unknown]
